FAERS Safety Report 5400618-3 (Version None)
Quarter: 2007Q3

REPORT INFORMATION
  Report Type: 
  Country: None (occurrence: None)
  Receive Date: 20070730
  Receipt Date: 20070404
  Transmission Date: 20080115
  Serious: No
  Sender: FDA-Public Use
  Company Number: A0646240A

PATIENT
  Age: 68 Year
  Sex: Male

DRUGS (3)
  1. ZANTAC 150 [Suspect]
     Route: 065
  2. PROTONIX [Suspect]
  3. PRILOSEC [Suspect]

REACTIONS (1)
  - DRUG INEFFECTIVE [None]
